FAERS Safety Report 7608894-3 (Version None)
Quarter: 2011Q3

REPORT INFORMATION
  Report Type: 
  Country: None (occurrence: None)
  Receive Date: 20110714
  Receipt Date: 20110701
  Transmission Date: 20111222
  Serious: Yes (Hospitalization, Other)
  Sender: FDA-Public Use
  Company Number: JP-CELGENEUS-087-50794-11062598

PATIENT
  Sex: Male

DRUGS (23)
  1. VIDAZA [Suspect]
     Dosage: 75 MILLIGRAM/SQ. METER
     Route: 058
     Dates: start: 20110516, end: 20110522
  2. ZOLPIDEM [Concomitant]
     Route: 065
     Dates: start: 20110407
  3. PASTARON [Concomitant]
     Route: 065
     Dates: start: 20110420
  4. LAXOBERON [Concomitant]
     Route: 065
     Dates: start: 20110422
  5. MAGMITT [Concomitant]
     Route: 065
     Dates: start: 20110421
  6. VESICARE [Concomitant]
     Route: 065
     Dates: start: 20110603, end: 20110609
  7. VIDAZA [Suspect]
     Dosage: 75 MILLIGRAM/SQ. METER
     Route: 058
     Dates: start: 20110418, end: 20110424
  8. PRIMPERAN TAB [Concomitant]
     Route: 065
     Dates: start: 20110520, end: 20110529
  9. ACETAMINOPHEN [Concomitant]
     Route: 065
     Dates: start: 20110517, end: 20110531
  10. PURNOSIDE [Concomitant]
     Route: 065
     Dates: start: 20110422
  11. RAMELTEON [Concomitant]
     Route: 065
     Dates: start: 20110418, end: 20110424
  12. RAMELTEON [Concomitant]
     Route: 065
     Dates: start: 20110517, end: 20110519
  13. ITRACONAZOLE [Concomitant]
     Route: 065
     Dates: start: 20110418, end: 20110608
  14. BACTRIM [Concomitant]
     Route: 065
     Dates: start: 20110507
  15. CONTOMIN [Concomitant]
     Route: 065
     Dates: start: 20110517, end: 20110531
  16. ITRACONAZOLE [Concomitant]
     Route: 065
     Dates: start: 20110606, end: 20110619
  17. BACTRIM [Concomitant]
     Route: 065
     Dates: start: 20110418, end: 20110427
  18. VESICARE [Concomitant]
     Route: 065
     Dates: start: 20110420, end: 20110426
  19. PRIMPERAN TAB [Concomitant]
     Route: 065
     Dates: start: 20110530, end: 20110531
  20. RABEPRAZOLE SODIUM [Concomitant]
     Route: 065
     Dates: start: 20110415
  21. EURAX [Concomitant]
     Route: 065
     Dates: start: 20110427
  22. OLOPATADINE HCL [Concomitant]
     Route: 065
     Dates: start: 20110428, end: 20110502
  23. URIEF [Concomitant]
     Route: 065
     Dates: start: 20110603, end: 20110609

REACTIONS (3)
  - DEMENTIA [None]
  - DECREASED APPETITE [None]
  - HYPONATRAEMIA [None]
